FAERS Safety Report 8169546-7 (Version None)
Quarter: 2012Q1

REPORT INFORMATION
  Report Type: 
  Country: None (occurrence: None)
  Receive Date: 20120104
  Receipt Date: 20111031
  Transmission Date: 20120608
  Serious: No
  Sender: FDA-Public Use
  Company Number: 2011HGS-002719

PATIENT
  Age: 36 Year
  Sex: Female
  Weight: 84.369 kg

DRUGS (10)
  1. BENLYSTA [Suspect]
     Indication: SYSTEMIC LUPUS ERYTHEMATOSUS
     Dosage: 10 MG/KG, 1 IN 28 D, INTRAVENOUS DRIP
     Route: 041
     Dates: start: 20110831
  2. CITALOPRAM HYDROBROMIDE [Concomitant]
  3. CLONAZEPAM [Concomitant]
  4. PLAQUENIL (HYDROXYCHLOROQUINE SULFATE) (HYDROXYCHLOROQUINE SULFATE) [Concomitant]
  5. OXYCODONE HCL [Concomitant]
  6. METHADONE (METHADONE) (METHADONE) [Concomitant]
  7. AMBIEN [Concomitant]
  8. VITAMIN (VITAMINS) (NULL) [Concomitant]
  9. NORVASC [Concomitant]
  10. NEURONTIN [Concomitant]

REACTIONS (3)
  - RHINORRHOEA [None]
  - DRUG INEFFECTIVE [None]
  - PAIN IN EXTREMITY [None]
